FAERS Safety Report 11333228 (Version 1)
Quarter: 2015Q3

REPORT INFORMATION
  Report Type: Spontaneous
  Country: US (occurrence: US)
  Receive Date: 20150803
  Receipt Date: 20150803
  Transmission Date: 20151125
  Serious: No
  Sender: FDA-Public Use
  Company Number: US-ELI_LILLY_AND_COMPANY-US200711003279

PATIENT
  Age: 58 Year
  Sex: Male
  Weight: 94.33 kg

DRUGS (11)
  1. LEXAPRO [Concomitant]
     Active Substance: ESCITALOPRAM OXALATE
     Indication: DEPRESSION
  2. PROTONIX [Concomitant]
     Active Substance: PANTOPRAZOLE SODIUM
     Indication: GASTRITIS
  3. FISH OIL [Concomitant]
     Active Substance: FISH OIL
  4. LOPERAMIDE [Concomitant]
     Active Substance: LOPERAMIDE
  5. ACTONEL [Concomitant]
     Active Substance: RISEDRONATE SODIUM
     Indication: OSTEOPOROSIS
  6. PREDNISONE. [Concomitant]
     Active Substance: PREDNISONE
     Dosage: 40 MG, DAILY (1/D)
     Route: 048
  7. MULTIVITAMIN [Concomitant]
     Active Substance: VITAMINS
  8. PREDNISONE. [Concomitant]
     Active Substance: PREDNISONE
     Dosage: 10 MG, DAILY (1/D)
     Route: 048
  9. PENTASA [Concomitant]
     Active Substance: MESALAMINE
  10. ZYPREXA [Suspect]
     Active Substance: OLANZAPINE
     Indication: DEPRESSION
     Dosage: UNK, UNK
  11. PREDNISONE. [Concomitant]
     Active Substance: PREDNISONE
     Indication: CROHN^S DISEASE
     Dosage: 5 MG, DAILY (1/D)
     Route: 048
     Dates: start: 1969

REACTIONS (6)
  - Malaise [Unknown]
  - Weight increased [Unknown]
  - Nausea [Unknown]
  - Oedema peripheral [Unknown]
  - Inguinal mass [Unknown]
  - Pelvic pain [Unknown]

NARRATIVE: CASE EVENT DATE: 20010908
